FAERS Safety Report 20528340 (Version 1)
Quarter: 2022Q1

REPORT INFORMATION
  Report Type: Spontaneous
  Country: AU (occurrence: AU)
  Receive Date: 20220228
  Receipt Date: 20220228
  Transmission Date: 20220423
  Serious: Yes (Death, Life-Threatening)
  Sender: FDA-Public Use
  Company Number: AU-PFIZER INC-202200299604

PATIENT
  Age: 37 Year
  Sex: Male

DRUGS (16)
  1. LYRICA [Suspect]
     Active Substance: PREGABALIN
     Dosage: 150 MG, 2X/DAY
  2. NALOXONE HYDROCHLORIDE\OXYCODONE HYDROCHLORIDE [Suspect]
     Active Substance: NALOXONE HYDROCHLORIDE\OXYCODONE HYDROCHLORIDE
     Dosage: 10/5MG, 2X/DAY
  3. NALOXONE HYDROCHLORIDE\OXYCODONE HYDROCHLORIDE [Suspect]
     Active Substance: NALOXONE HYDROCHLORIDE\OXYCODONE HYDROCHLORIDE
     Dosage: 20/10MG, 2X/DAY
  4. QUETIAPINE [Suspect]
     Active Substance: QUETIAPINE
     Dosage: 100 MG
  5. CLONAZEPAM [Suspect]
     Active Substance: CLONAZEPAM
     Dosage: 2 MG, PRN
  6. NALOXONE [Concomitant]
     Active Substance: NALOXONE
     Dosage: 400 MG
     Route: 042
  7. NEXIUM I.V. [Concomitant]
     Active Substance: ESOMEPRAZOLE SODIUM
     Dosage: 20 MG, DAILY
  8. PROPRANOLOL [Concomitant]
     Active Substance: PROPRANOLOL HYDROCHLORIDE
     Dosage: 40 MG 2 TABLETS 2X PER DAY
  9. NAPROSYN [Concomitant]
     Active Substance: NAPROXEN
     Dosage: 1000 MG, DAILY
  10. REMERON [Concomitant]
     Active Substance: MIRTAZAPINE
     Dosage: 45 MG, 1X IN THE EVENING
  11. ZOLPIDEM TARTRATE [Concomitant]
     Active Substance: ZOLPIDEM TARTRATE
     Dosage: 10 MG AT NIGHT
  12. VIAGRA [Concomitant]
     Active Substance: SILDENAFIL CITRATE
     Dosage: 100 MG, PRN
  13. PIZOTYLINE [Concomitant]
     Active Substance: PIZOTYLINE
     Dosage: UNK
  14. IBUPROFEN [Concomitant]
     Active Substance: IBUPROFEN
     Dosage: 200 MG
  15. INDOMETHACIN [Concomitant]
     Active Substance: INDOMETHACIN
     Dosage: 25 MG
  16. METOCLOPRAMIDE [Concomitant]
     Active Substance: METOCLOPRAMIDE
     Dosage: 10 MG

REACTIONS (1)
  - Toxicity to various agents [Fatal]

NARRATIVE: CASE EVENT DATE: 20170621
